FAERS Safety Report 5636743-1 (Version None)
Quarter: 2008Q1

REPORT INFORMATION
  Report Type: 
  Country: None (occurrence: None)
  Receive Date: 20080219
  Receipt Date: 20080203
  Transmission Date: 20080703
  Serious: Yes (Hospitalization)
  Sender: FDA-Public Use
  Company Number: 2008BI002690

PATIENT
  Age: 49 Year
  Sex: Female
  Weight: 70 kg

DRUGS (6)
  1. NATALIZUMAB (NATALIZUMAB) [Suspect]
     Indication: MULTIPLE SCLEROSIS
     Dosage: 300 MG; QM; IV
     Route: 042
     Dates: start: 20060927, end: 20080120
  2. CIPRALEX [Concomitant]
  3. TOPAMAX [Concomitant]
  4. PROVIGIL [Concomitant]
  5. NUROFEN [Concomitant]
  6. ACAMOL [Concomitant]

REACTIONS (3)
  - CHOLESTASIS [None]
  - GALLBLADDER DISORDER [None]
  - HEPATITIS A [None]
